FAERS Safety Report 4762035-9 (Version None)
Quarter: 2005Q3

REPORT INFORMATION
  Report Type: 
  Country: None (occurrence: None)
  Receive Date: 20050831
  Receipt Date: 20050627
  Transmission Date: 20060218
  Serious: No
  Sender: FDA-Public Use
  Company Number: PHEH2005US07272

PATIENT
  Age: 68 Year
  Sex: Female

DRUGS (5)
  1. ENABLEX(DARIFENACIN HYDROCHLORIDE) TABLET [Suspect]
     Indication: HYPERTONIC BLADDER
     Dosage: 7.5 MG, QD
  2. CRESTOR [Concomitant]
  3. THYROID THERAPY (NO INGREDIENTS SUBSTANCES) [Concomitant]
  4. EVISTA [Concomitant]
  5. ANTIVERT (MECLOZINE HYDROCHLORIDE) [Concomitant]

REACTIONS (1)
  - DIZZINESS [None]
